FAERS Safety Report 8385769-6 (Version None)
Quarter: 2012Q2

REPORT INFORMATION
  Report Type: 
  Country: None (occurrence: None)
  Receive Date: 20120523
  Receipt Date: 20120511
  Transmission Date: 20120825
  Serious: Yes (Other)
  Sender: FDA-Public Use
  Company Number: DSA_57065_2012

PATIENT
  Age: 73 Year
  Sex: Female

DRUGS (1)
  1. DILTIAZEM HCL [Suspect]
     Indication: JUGULAR VEIN DISTENSION
     Dosage: (30 MG QD INTRAVENOUS (NOT OTHERWISE SPECIFIED))
     Route: 042
     Dates: start: 20101213, end: 20101214

REACTIONS (2)
  - DYSPNOEA [None]
  - CHILLS [None]
